FAERS Safety Report 11410710 (Version 1)
Quarter: 2015Q3

REPORT INFORMATION
  Report Type: Spontaneous
  Country: TR (occurrence: TR)
  Receive Date: 20150824
  Receipt Date: 20150824
  Transmission Date: 20151125
  Serious: Yes (Other)
  Sender: FDA-Public Use
  Company Number: TR-TEVA-588232ISR

PATIENT
  Age: 88 Year
  Sex: Female

DRUGS (1)
  1. GABATEVA [Suspect]
     Active Substance: GABAPENTIN
     Dosage: GABATEVA 300 MG CAPSULE
     Route: 048

REACTIONS (2)
  - Hallucination [Unknown]
  - Speech disorder [Unknown]

NARRATIVE: CASE EVENT DATE: 201508
